FAERS Safety Report 25493773 (Version 1)
Quarter: 2025Q2

REPORT INFORMATION
  Report Type: Report from Study
  Country: US (occurrence: US)
  Receive Date: 20250630
  Receipt Date: 20250630
  Transmission Date: 20250717
  Serious: Yes (Other)
  Sender: GILEAD
  Company Number: US-GILEAD-2025-0718412

PATIENT
  Sex: Male

DRUGS (1)
  1. BICTEGRAVIR\EMTRICITABINE\TENOFOVIR ALAFENAMIDE [Suspect]
     Active Substance: BICTEGRAVIR\EMTRICITABINE\TENOFOVIR ALAFENAMIDE
     Indication: HIV infection
     Route: 065
     Dates: start: 2018

REACTIONS (6)
  - Cataract [Not Recovered/Not Resolved]
  - Arthralgia [Unknown]
  - Nocturia [Unknown]
  - Blood cholesterol increased [Unknown]
  - Visual impairment [Not Recovered/Not Resolved]
  - Product use issue [Recovered/Resolved]
